FAERS Safety Report 20410032 (Version 1)
Quarter: 2022Q1

REPORT INFORMATION
  Report Type: Spontaneous
  Country: US (occurrence: None)
  Receive Date: 20220131
  Receipt Date: 20220131
  Transmission Date: 20220424
  Serious: Yes (unspecified)
  Sender: FDA-Public Use
  Company Number: None

PATIENT
  Age: 64 Year
  Sex: Female
  Weight: 81 kg

DRUGS (12)
  1. REGEN-COV [Suspect]
     Active Substance: CASIRIVIMAB\IMDEVIMAB
     Indication: COVID-19
     Dosage: OTHER QUANTITY : 1 INJECTION(S);?OTHER FREQUENCY : ONCE;?
     Route: 058
     Dates: start: 20211229, end: 20211229
  2. LEVOTHYROXINE [Concomitant]
     Active Substance: LEVOTHYROXINE
  3. ATORVASTATIN [Concomitant]
     Active Substance: ATORVASTATIN
  4. FLEXERIL [Concomitant]
     Active Substance: CYCLOBENZAPRINE HYDROCHLORIDE
  5. BUPRENORPHINE [Concomitant]
     Active Substance: BUPRENORPHINE
  6. PROGESTERONE [Concomitant]
     Active Substance: PROGESTERONE
  7. ESTROGENS [Concomitant]
     Active Substance: ESTROGENS
  8. TESTOSTERONE [Concomitant]
     Active Substance: TESTOSTERONE
  9. VITAMIN D3 [Concomitant]
     Active Substance: CHOLECALCIFEROL
  10. CYANOCOBALAMIN [Concomitant]
     Active Substance: CYANOCOBALAMIN
  11. ZINC [Concomitant]
     Active Substance: ZINC
  12. MAGNESIUM [Concomitant]
     Active Substance: MAGNESIUM

REACTIONS (8)
  - Injection site pain [None]
  - Injection site pain [None]
  - Injection site bruising [None]
  - Injection site inflammation [None]
  - Drug ineffective [None]
  - Injection site eczema [None]
  - Injection site discolouration [None]
  - Injection site scar [None]

NARRATIVE: CASE EVENT DATE: 20211229
